FAERS Safety Report 20021318 (Version 1)
Quarter: 2021Q4

REPORT INFORMATION
  Report Type: Spontaneous
  Country: MX (occurrence: MX)
  Receive Date: 20211101
  Receipt Date: 20211101
  Transmission Date: 20220303
  Serious: Yes (Hospitalization)
  Sender: FDA-Public Use
  Company Number: MX-BAYER-2021A240571

PATIENT
  Age: 35 Year
  Sex: Male

DRUGS (1)
  1. LAROTRECTINIB [Suspect]
     Active Substance: LAROTRECTINIB
     Indication: Oligodendroglioma
     Dosage: 100 MG, BID
     Route: 048
     Dates: start: 20201020, end: 20211021

REACTIONS (1)
  - Oligodendroglioma [None]

NARRATIVE: CASE EVENT DATE: 20201027
